FAERS Safety Report 6507613-1 (Version None)
Quarter: 2009Q4

REPORT INFORMATION
  Report Type: 
  Country: None (occurrence: None)
  Receive Date: 20091221
  Receipt Date: 20090630
  Transmission Date: 20100525
  Serious: No
  Sender: FDA-Public Use
  Company Number: US-BRISTOL-MYERS SQUIBB COMPANY-14684278

PATIENT
  Age: 92 Year
  Sex: Female
  Weight: 50 kg

DRUGS (7)
  1. PRAVASTATIN [Suspect]
     Indication: CEREBROVASCULAR ACCIDENT
  2. PLAVIX [Suspect]
     Indication: CEREBROVASCULAR ACCIDENT
     Dosage: TAKEN APPROXIMATELY 3 YEARS. THERAPY DATES:21JUN09, 23JUN09
     Route: 048
  3. SIMVASTATIN [Suspect]
     Indication: CEREBROVASCULAR ACCIDENT
  4. CALCIUM [Concomitant]
  5. VITAMIN D [Concomitant]
  6. COQ10 [Concomitant]
  7. FLAXSEED OIL [Concomitant]

REACTIONS (1)
  - FATIGUE [None]
